FAERS Safety Report 13204147 (Version 1)
Quarter: 2017Q1

REPORT INFORMATION
  Report Type: Spontaneous
  Country: RO (occurrence: RO)
  Receive Date: 20170209
  Receipt Date: 20170209
  Transmission Date: 20170428
  Serious: Yes (Hospitalization, Other)
  Sender: FDA-Public Use
  Company Number: RO-GLAXOSMITHKLINE-RO2017GSK015282

PATIENT
  Age: 27 Year
  Sex: Male

DRUGS (8)
  1. ABACAVIR. [Suspect]
     Active Substance: ABACAVIR
     Indication: ANTIRETROVIRAL THERAPY
  2. ZIDOVUDINE. [Suspect]
     Active Substance: ZIDOVUDINE
     Indication: ANTIRETROVIRAL THERAPY
  3. EFAVIRENZ [Suspect]
     Active Substance: EFAVIRENZ
     Indication: ANTIRETROVIRAL THERAPY
  4. SAQUINAVIR [Suspect]
     Active Substance: SAQUINAVIR
     Indication: ANTIRETROVIRAL THERAPY
  5. DARUNAVIR [Suspect]
     Active Substance: DARUNAVIR
     Indication: ANTIRETROVIRAL THERAPY
  6. LAMIVUDINE. [Suspect]
     Active Substance: LAMIVUDINE
  7. STAVUDINE. [Suspect]
     Active Substance: STAVUDINE
     Indication: ANTIRETROVIRAL THERAPY
  8. RITONAVIR. [Suspect]
     Active Substance: RITONAVIR
     Indication: ANTIRETROVIRAL THERAPY

REACTIONS (13)
  - CD4 lymphocytes abnormal [Unknown]
  - Splenomegaly [Unknown]
  - Hepatic enzyme increased [Unknown]
  - Hodgkin^s disease [Unknown]
  - Hepatomegaly [Unknown]
  - Cough [Unknown]
  - Lymphopenia [Unknown]
  - Thrombocytopenia [Unknown]
  - Asthenia [Unknown]
  - Lymphadenopathy [Unknown]
  - Hyperhidrosis [Unknown]
  - Leukopenia [Unknown]
  - Microcytic anaemia [Unknown]
